FAERS Safety Report 9448529 (Version 1)
Quarter: 2013Q3

REPORT INFORMATION
  Report Type: Spontaneous
  Country: BR (occurrence: BR)
  Receive Date: 20130808
  Receipt Date: 20130808
  Transmission Date: 20140515
  Serious: Yes (Other)
  Sender: FDA-Public Use
  Company Number: BR-ELI_LILLY_AND_COMPANY-BR201307010888

PATIENT
  Sex: Male
  Weight: 70 kg

DRUGS (4)
  1. HUMALOG [Suspect]
     Indication: TYPE 1 DIABETES MELLITUS
     Dosage: 5 IU, EACH MORNING
     Route: 065
     Dates: start: 201302
  2. HUMALOG [Suspect]
     Dosage: 8 IU, QD
     Route: 065
     Dates: start: 201302
  3. HUMALOG [Suspect]
     Dosage: 5 IU, QD
     Route: 065
     Dates: start: 201302
  4. HUMALOG [Suspect]
     Dosage: 6 IU, QD
     Route: 065
     Dates: start: 201302

REACTIONS (4)
  - Coma [Not Recovered/Not Resolved]
  - Convulsion [Not Recovered/Not Resolved]
  - Hypoglycaemia [Not Recovered/Not Resolved]
  - Hyperglycaemia [Not Recovered/Not Resolved]
